FAERS Safety Report 7000425-4 (Version None)
Quarter: 2010Q3

REPORT INFORMATION
  Report Type: 
  Country: None (occurrence: None)
  Receive Date: 20100920
  Receipt Date: 20100517
  Transmission Date: 20110219
  Serious: No
  Sender: FDA-Public Use
  Company Number: US-ASTRAZENECA-2010SE18280

PATIENT
  Age: 27 Year
  Sex: Female

DRUGS (3)
  1. SEROQUEL XR [Suspect]
     Indication: BIPOLAR II DISORDER
     Dosage: 50-100 MILLIGRAMS; DAILY.
     Route: 048
     Dates: start: 20100329, end: 20100405
  2. SEROQUEL XR [Suspect]
     Route: 048
     Dates: start: 20100415, end: 20100423
  3. SEROQUEL XR [Suspect]
     Dosage: 50-100 MILLIGRAMS; DAILY.
     Route: 048

REACTIONS (1)
  - GALACTORRHOEA [None]
